FAERS Safety Report 21756849 (Version 1)
Quarter: 2022Q4

REPORT INFORMATION
  Report Type: Spontaneous
  Country: US (occurrence: None)
  Receive Date: 20221220
  Receipt Date: 20221220
  Transmission Date: 20230113
  Serious: No
  Sender: FDA-Public Use
  Company Number: 2022A385058

PATIENT
  Age: 78 Year
  Sex: Male
  Weight: 71.7 kg

DRUGS (1)
  1. BREZTRI [Suspect]
     Active Substance: BUDESONIDE\FORMOTEROL\GLYCOPYRROLATE
     Indication: Chronic obstructive pulmonary disease
     Route: 055
     Dates: start: 202211

REACTIONS (3)
  - Wrong technique in device usage process [Unknown]
  - Dysphonia [Unknown]
  - Device malfunction [Unknown]

NARRATIVE: CASE EVENT DATE: 20221101
